FAERS Safety Report 23109465 (Version 1)
Quarter: 2023Q4

REPORT INFORMATION
  Report Type: Spontaneous
  Country: ES (occurrence: ES)
  Receive Date: 20231026
  Receipt Date: 20231026
  Transmission Date: 20240109
  Serious: Yes (Other)
  Sender: FDA-Public Use
  Company Number: ES-PFIZER INC-PV202300174669

PATIENT
  Age: 69 Year
  Sex: Female

DRUGS (2)
  1. PALBOCICLIB [Suspect]
     Active Substance: PALBOCICLIB
     Dosage: 125 MG
     Dates: start: 201904
  2. LETROZOLE [Suspect]
     Active Substance: LETROZOLE
     Dosage: UNK
     Dates: start: 201904

REACTIONS (6)
  - Thoracic vertebral fracture [Unknown]
  - Neoplasm progression [Unknown]
  - Osteoporosis [Unknown]
  - Asthenia [Unknown]
  - Headache [Unknown]
  - Bradyphrenia [Unknown]
